FAERS Safety Report 7390184-8 (Version None)
Quarter: 2011Q2

REPORT INFORMATION
  Report Type: 
  Country: None (occurrence: None)
  Receive Date: 20110401
  Receipt Date: 20110331
  Transmission Date: 20111010
  Serious: Yes (Hospitalization)
  Sender: FDA-Public Use
  Company Number: BR-ROCHE-768676

PATIENT
  Sex: Female
  Weight: 49 kg

DRUGS (2)
  1. BONIVA [Suspect]
     Indication: OSTEOPOROSIS
     Route: 065
     Dates: start: 20070101
  2. DEPAKENE [Concomitant]
     Indication: CONVULSION PROPHYLAXIS

REACTIONS (1)
  - BRAIN NEOPLASM [None]
